FAERS Safety Report 9006433 (Version 2)
Quarter: 2013Q1

REPORT INFORMATION
  Report Type: Spontaneous
  Country: US (occurrence: US)
  Receive Date: 20130110
  Receipt Date: 20130201
  Transmission Date: 20140127
  Serious: No
  Sender: FDA-Public Use
  Company Number: US-PFIZER INC-2013007251

PATIENT
  Age: 33 Year
  Sex: Female

DRUGS (1)
  1. EPIPEN [Suspect]
     Dosage: UNK

REACTIONS (4)
  - Accidental exposure to product [Unknown]
  - Injection site injury [Unknown]
  - Blood pressure increased [Unknown]
  - Heart rate increased [Unknown]
